FAERS Safety Report 8849316 (Version 1)
Quarter: 2012Q4

REPORT INFORMATION
  Report Type: Spontaneous
  Country: US (occurrence: None)
  Receive Date: 20121017
  Receipt Date: 20121017
  Transmission Date: 20130627
  Serious: Yes (Other)
  Sender: FDA-Public Use
  Company Number: None

PATIENT
  Age: 73 Year
  Sex: Female

DRUGS (1)
  1. DOCETAXEL [Suspect]
     Indication: DUCTAL BREAST CARCINOMA STAGE II
     Dosage: 75 mg/m^2
     Route: 041

REACTIONS (2)
  - Abdominal pain [None]
  - Gastrointestinal motility disorder [None]
